FAERS Safety Report 6553720-7 (Version None)
Quarter: 2010Q1

REPORT INFORMATION
  Report Type: 
  Country: None (occurrence: None)
  Receive Date: 20100125
  Receipt Date: 20100125
  Transmission Date: 20100710
  Serious: Yes (Hospitalization)
  Sender: FDA-Public Use
  Company Number: None

PATIENT
  Age: 78 Year
  Sex: Female
  Weight: 68.4932 kg

DRUGS (12)
  1. RITUXAN [Suspect]
     Indication: B-CELL LYMPHOMA
     Dosage: 375 MG/M2 (VARIABLE DOSE) Q2 WEEKS IV
     Route: 042
     Dates: start: 20091021, end: 20091230
  2. CYCLOPHOSPHAMIDE [Suspect]
     Indication: B-CELL LYMPHOMA
     Dosage: 750 MG/M2 (VARIABLE DOSE) Q2 WEEKS IV
     Route: 042
     Dates: start: 20091022, end: 20091230
  3. DOXORUBICIN HCL [Suspect]
     Indication: B-CELL LYMPHOMA
     Dosage: 50 MG/M2, Q2 WEEKS, IV (VARIABLE DOSE)
     Route: 042
     Dates: start: 20091022, end: 20091230
  4. PREDNISONE [Suspect]
     Indication: PROPHYLAXIS
     Dosage: 100 MG, DAYS 1-5 OF EACH CYCLE, PO
     Route: 048
     Dates: start: 20091022, end: 20100103
  5. VINCRISTINE [Suspect]
     Indication: B-CELL LYMPHOMA
     Dosage: 2 MG, Q2 WEEKS, IV
     Route: 042
     Dates: start: 20091022, end: 20091230
  6. NEULASTA [Suspect]
     Indication: PROPHYLAXIS
     Dosage: 6 MG, Q2 WEEKS
     Dates: start: 20091023, end: 20091231
  7. LISINOPRIL [Concomitant]
  8. NORVASC [Concomitant]
  9. PRAVACHOL [Concomitant]
  10. PREVACID [Concomitant]
  11. INSULIN DETEMIR [Concomitant]
  12. XALATAN [Concomitant]

REACTIONS (1)
  - PNEUMONIA [None]
